FAERS Safety Report 9334003 (Version 2)
Quarter: 2013Q4

REPORT INFORMATION
  Report Type: Spontaneous
  Country: US (occurrence: US)
  Receive Date: 20130606
  Receipt Date: 20131212
  Transmission Date: 20140711
  Serious: Yes (Other)
  Sender: FDA-Public Use
  Company Number: US-BAYER-2013-065100

PATIENT
  Age: 69 Year
  Sex: Male
  Weight: 104.31 kg

DRUGS (4)
  1. ALKA-SELTZER ORIGINAL [Suspect]
     Indication: HANGOVER
     Dosage: 2 DOSE
     Route: 048
  2. ALKA-SELTZER ORIGINAL [Suspect]
     Indication: SINUS DISORDER
  3. ALKA-SELTZER ORIGINAL [Suspect]
     Indication: UNEVALUABLE EVENT
  4. ALKA-SELTZER ORIGINAL [Suspect]
     Indication: UNEVALUABLE EVENT

REACTIONS (7)
  - Drug dependence [None]
  - Product odour abnormal [None]
  - Wrong technique in drug usage process [None]
  - Incorrect drug administration duration [None]
  - Off label use [None]
  - Dysgeusia [None]
  - Off label use [None]
